FAERS Safety Report 19111208 (Version 1)
Quarter: 2021Q2

REPORT INFORMATION
  Report Type: Spontaneous
  Country: US (occurrence: US)
  Receive Date: 20210408
  Receipt Date: 20210408
  Transmission Date: 20210717
  Serious: Yes (Life-Threatening, Disabling)
  Sender: FDA-Public Use
  Company Number: None

PATIENT
  Age: 64 Year
  Sex: Female
  Weight: 87.75 kg

DRUGS (7)
  1. LOSARTAN. [Concomitant]
     Active Substance: LOSARTAN
  2. TRAMADOL. [Suspect]
     Active Substance: TRAMADOL
     Indication: PAIN IN EXTREMITY
     Dosage: ?          QUANTITY:40 TABLET(S);OTHER ROUTE:PO?
     Dates: start: 20150101, end: 20210201
  3. CALCIUM [Concomitant]
     Active Substance: CALCIUM
  4. MAGNESIUM [Concomitant]
     Active Substance: MAGNESIUM
  5. TRAMADOL. [Suspect]
     Active Substance: TRAMADOL
     Indication: ARTHRALGIA
     Dosage: ?          QUANTITY:40 TABLET(S);OTHER ROUTE:PO?
     Dates: start: 20150101, end: 20210201
  6. TRAMADOL. [Suspect]
     Active Substance: TRAMADOL
     Indication: BACK PAIN
     Dosage: ?          QUANTITY:40 TABLET(S);OTHER ROUTE:PO?
     Dates: start: 20150101, end: 20210201
  7. ZINC. [Concomitant]
     Active Substance: ZINC

REACTIONS (1)
  - Muscle spasms [None]

NARRATIVE: CASE EVENT DATE: 20201024
